FAERS Safety Report 19770565 (Version 4)
Quarter: 2022Q3

REPORT INFORMATION
  Report Type: Report from Study
  Country: US (occurrence: US)
  Receive Date: 20210831
  Receipt Date: 20220715
  Transmission Date: 20221027
  Serious: No
  Sender: FDA-Public Use
  Company Number: NVSC2021US197411

PATIENT
  Sex: Female

DRUGS (5)
  1. KESIMPTA [Suspect]
     Active Substance: OFATUMUMAB
     Indication: Multiple sclerosis
     Dosage: 20 MG, QW
     Route: 058
  2. OXYBUTYNIN [Concomitant]
     Active Substance: OXYBUTYNIN
     Indication: Product used for unknown indication
     Dosage: UNK
     Route: 065
  3. VITAMIN D3 [Concomitant]
     Active Substance: CHOLECALCIFEROL
     Indication: Product used for unknown indication
     Dosage: UNK
     Route: 065
  4. CITALOPRAM [Concomitant]
     Active Substance: CITALOPRAM HYDROBROMIDE
     Indication: Product used for unknown indication
     Dosage: UNK
     Route: 065
  5. AMITRIPTYLINE [Concomitant]
     Active Substance: AMITRIPTYLINE
     Indication: Product used for unknown indication
     Dosage: UNK
     Route: 065

REACTIONS (6)
  - Dizziness [Not Recovered/Not Resolved]
  - Influenza like illness [Unknown]
  - Vertigo [Unknown]
  - Headache [Unknown]
  - Rhinorrhoea [Unknown]
  - Vision blurred [Unknown]
